FAERS Safety Report 8965367 (Version 1)
Quarter: 2012Q4

REPORT INFORMATION
  Report Type: 
  Country: US (occurrence: US)
  Receive Date: 20121213
  Receipt Date: 20121213
  Transmission Date: 20130627
  Serious: Yes (Other)
  Sender: FDA-Public Use
  Company Number: US-ELI_LILLY_AND_COMPANY-US201212001561

PATIENT
  Sex: Female

DRUGS (1)
  1. CYMBALTA [Suspect]
     Indication: FIBROMYALGIA
     Dosage: 60 mg, qd

REACTIONS (10)
  - Loss of consciousness [Unknown]
  - Mental disorder [Unknown]
  - Dissociative fugue [Not Recovered/Not Resolved]
  - Thinking abnormal [Unknown]
  - Stress [Unknown]
  - Abnormal behaviour [Unknown]
  - Fatigue [Unknown]
  - Anger [Unknown]
  - Nausea [Unknown]
  - Drug interaction [Unknown]
